FAERS Safety Report 8451248-0 (Version None)
Quarter: 2012Q2

REPORT INFORMATION
  Report Type: 
  Country: None (occurrence: None)
  Receive Date: 20120620
  Receipt Date: 20120320
  Transmission Date: 20120825
  Serious: No
  Sender: FDA-Public Use
  Company Number: US-VERTEX PHARMACEUTICALS INC.-AE-2012-001614

PATIENT
  Sex: Male
  Weight: 118.04 kg

DRUGS (5)
  1. PEGASYS [Concomitant]
     Indication: HEPATITIS C
     Route: 058
     Dates: start: 20111228
  2. HCTZ COMBINATION [Concomitant]
     Indication: HYPERTENSION
     Route: 048
  3. RIBAVIRIN [Concomitant]
     Indication: HEPATITIS C
     Route: 048
     Dates: start: 20111228
  4. INCIVEK [Suspect]
     Indication: HEPATITIS C
     Route: 048
     Dates: start: 20111228
  5. NORVASC [Concomitant]
     Indication: HYPERTENSION
     Route: 048

REACTIONS (3)
  - NAUSEA [None]
  - PRURITUS [None]
  - RASH GENERALISED [None]
